FAERS Safety Report 5704078-4 (Version None)
Quarter: 2008Q2

REPORT INFORMATION
  Report Type: 
  Country: None (occurrence: None)
  Receive Date: 20080409
  Receipt Date: 20080402
  Transmission Date: 20081010
  Serious: Yes (Hospitalization)
  Sender: FDA-Public Use
  Company Number: WAES 0804GBR00023

PATIENT
  Age: 80 Year
  Sex: Male

DRUGS (9)
  1. COZAAR [Suspect]
     Indication: CARDIAC FAILURE CONGESTIVE
     Dosage: PO
     Route: 048
     Dates: start: 20040210
  2. ASPIRIN [Concomitant]
  3. CARVEDILOL [Concomitant]
  4. DOMPERIDONE [Concomitant]
  5. FUROSEMIDE [Concomitant]
  6. GLIMEPIRIDE [Concomitant]
  7. LANSOPRAZOLE [Concomitant]
  8. POLYETHYLENE GLYCOL 3350/KCL/NAHCO3/NACL [Concomitant]
  9. SIMVASTATIN [Concomitant]

REACTIONS (2)
  - ANAEMIA [None]
  - INTESTINAL FUNCTIONAL DISORDER [None]
